FAERS Safety Report 8584155-3 (Version None)
Quarter: 2012Q3

REPORT INFORMATION
  Report Type: 
  Country: None (occurrence: None)
  Receive Date: 20120810
  Receipt Date: 20120731
  Transmission Date: 20120928
  Serious: Yes (Hospitalization)
  Sender: FDA-Public Use
  Company Number: FR-BRISTOL-MYERS SQUIBB COMPANY-15769763

PATIENT
  Age: 79 Year
  Sex: Male

DRUGS (14)
  1. VASTAREL [Concomitant]
  2. ACETAMINOPHEN [Concomitant]
  3. PRAVASTATIN [Concomitant]
  4. OMEPRAZOLE [Concomitant]
  5. ERBITUX [Suspect]
     Indication: LARYNGEAL CANCER
     Route: 042
     Dates: start: 20110427, end: 20110427
  6. ACEBUTOLOL [Concomitant]
  7. ASPIRIN [Concomitant]
  8. MOLSIDOMINE [Concomitant]
  9. AMLODIPINE BESYLATE [Concomitant]
  10. GAVISCON [Concomitant]
  11. IMODIUM [Concomitant]
  12. LORAZEPAM [Concomitant]
  13. FUROSEMIDE [Concomitant]
  14. PREDNISONE TAB [Concomitant]

REACTIONS (8)
  - CONFUSIONAL STATE [None]
  - FALL [None]
  - PYREXIA [None]
  - ASTHENIA [None]
  - MENINGITIS ASEPTIC [None]
  - TACHYCARDIA [None]
  - VIITH NERVE PARALYSIS [None]
  - CHILLS [None]
